FAERS Safety Report 21853443 (Version 1)
Quarter: 2023Q1

REPORT INFORMATION
  Report Type: Spontaneous
  Country: US (occurrence: None)
  Receive Date: 20230112
  Receipt Date: 20230112
  Transmission Date: 20230417
  Serious: Yes (Hospitalization)
  Sender: FDA-Public Use
  Company Number: US-ROCHE-3262310

PATIENT
  Sex: Female

DRUGS (22)
  1. ACTEMRA [Suspect]
     Active Substance: TOCILIZUMAB
     Indication: Rheumatoid arthritis
     Dosage: STRENGTH: 162 MG 0.9 ML
     Route: 058
  2. ACTEMRA [Suspect]
     Active Substance: TOCILIZUMAB
  3. BACLOFEN [Concomitant]
     Active Substance: BACLOFEN
  4. BIOTIN [Concomitant]
     Active Substance: BIOTIN
  5. BUSPIRONE [Concomitant]
     Active Substance: BUSPIRONE HYDROCHLORIDE
  6. DULOXETINE [Concomitant]
     Active Substance: DULOXETINE
  7. ESTRADIOL [Concomitant]
     Active Substance: ESTRADIOL
  8. GABAPENTIN [Concomitant]
     Active Substance: GABAPENTIN
  9. HYDROCODONE [Concomitant]
     Active Substance: HYDROCODONE
     Dosage: 2.5 TO 108 M
  10. LEFLUNOMIDE [Concomitant]
     Active Substance: LEFLUNOMIDE
  11. METHYLPHENIDATE [Concomitant]
     Active Substance: METHYLPHENIDATE
  12. MULTI BETIC [Concomitant]
  13. OMEGA-3-FS [Concomitant]
  14. OMEPRAZOLE [Concomitant]
     Active Substance: OMEPRAZOLE
  15. ONDANSETRON [Concomitant]
     Active Substance: ONDANSETRON
  16. RINVOQ [Concomitant]
     Active Substance: UPADACITINIB
  17. SEROQUEL [Concomitant]
     Active Substance: QUETIAPINE FUMARATE
  18. SERTRALINE [Concomitant]
     Active Substance: SERTRALINE HYDROCHLORIDE
  19. SUCRALFATE [Concomitant]
     Active Substance: SUCRALFATE
     Dosage: 1 MG/10 ML
  20. SULFASALAZINE [Concomitant]
     Active Substance: SULFASALAZINE
  21. TOPIRAMATE [Concomitant]
     Active Substance: TOPIRAMATE
  22. ZYRTEC [Concomitant]
     Active Substance: CETIRIZINE HYDROCHLORIDE
     Dosage: 1 MG/ML

REACTIONS (5)
  - Fatigue [Unknown]
  - Fibromyalgia [Unknown]
  - Depression [Unknown]
  - Suicide attempt [Unknown]
  - Anxiety [Unknown]

NARRATIVE: CASE EVENT DATE: 20220909
